FAERS Safety Report 18687966 (Version 1)
Quarter: 2020Q4

REPORT INFORMATION
  Report Type: Spontaneous
  Country: US (occurrence: US)
  Receive Date: 20201229
  Receipt Date: 20201229
  Transmission Date: 20210114
  Serious: No
  Sender: FDA-Public Use
  Company Number: None

PATIENT
  Age: 42 Year
  Sex: Female

DRUGS (1)
  1. HUMIRA [Suspect]
     Active Substance: ADALIMUMAB
     Indication: UVEITIS
     Route: 058
     Dates: start: 202010

REACTIONS (7)
  - Alopecia [None]
  - Chills [None]
  - SARS-CoV-2 test negative [None]
  - Visual impairment [None]
  - Pain [None]
  - Pyrexia [None]
  - Headache [None]
